FAERS Safety Report 25448341 (Version 1)
Quarter: 2025Q2

REPORT INFORMATION
  Report Type: Spontaneous
  Country: CN (occurrence: CN)
  Receive Date: 20250617
  Receipt Date: 20250617
  Transmission Date: 20250716
  Serious: Yes (Other)
  Sender: ABBVIE
  Company Number: CN-ABBVIE-6328183

PATIENT
  Age: 57 Year
  Sex: Male
  Weight: 64 kg

DRUGS (4)
  1. VENETOCLAX [Suspect]
     Active Substance: VENETOCLAX
     Indication: Chemotherapy
     Dosage: 200 MG D1-7
     Route: 048
     Dates: start: 20250513, end: 20250520
  2. CYTARABINE [Suspect]
     Active Substance: CYTARABINE
     Indication: Chemotherapy
     Dosage: CYTARABINE 10G D1, D3, D5
     Route: 041
     Dates: start: 20250513, end: 20250513
  3. CYTARABINE [Suspect]
     Active Substance: CYTARABINE
     Indication: Chemotherapy
     Dosage: CYTARABINE 10G D1, D3, D5
     Route: 041
     Dates: start: 20250515, end: 20250515
  4. CYTARABINE [Suspect]
     Active Substance: CYTARABINE
     Indication: Chemotherapy
     Dosage: CYTARABINE 10G D1, D3, D5
     Route: 041
     Dates: start: 20250517, end: 20250517

REACTIONS (1)
  - Myelosuppression [Recovering/Resolving]

NARRATIVE: CASE EVENT DATE: 20250525
